FAERS Safety Report 7594160-1 (Version None)
Quarter: 2011Q3

REPORT INFORMATION
  Report Type: 
  Country: None (occurrence: None)
  Receive Date: 20110706
  Receipt Date: 20110628
  Transmission Date: 20111222
  Serious: Yes (Hospitalization, Other)
  Sender: FDA-Public Use
  Company Number: JP-PFIZER INC-2010075591

PATIENT
  Age: 51 Year
  Sex: Female
  Weight: 44.6 kg

DRUGS (8)
  1. REMICADE [Suspect]
     Indication: RHEUMATOID ARTHRITIS
     Dosage: UNK
     Route: 042
     Dates: start: 20100219, end: 20100402
  2. FAMOTIDINE [Concomitant]
     Dosage: UNK
     Route: 048
     Dates: end: 20100517
  3. AZULFIDINE [Suspect]
     Indication: RHEUMATOID ARTHRITIS
     Dosage: UNK
     Route: 048
  4. ZYRTEC [Concomitant]
     Dosage: UNK
     Route: 048
     Dates: start: 20100219, end: 20100510
  5. RHEUMATREX [Suspect]
     Indication: RHEUMATOID ARTHRITIS
     Dosage: 10 MG, WEEKLY
     Route: 048
     Dates: start: 20030623, end: 20100510
  6. RIMATIL [Suspect]
     Indication: RHEUMATOID ARTHRITIS
     Dosage: UNK
  7. FOLIC ACID [Concomitant]
     Dosage: UNK
     Route: 048
     Dates: start: 20090213, end: 20100510
  8. NEOPHAGEN [Concomitant]
     Dosage: UNK
     Route: 048
     Dates: start: 20100219, end: 20100510

REACTIONS (2)
  - HYPERSENSITIVITY [None]
  - INTERSTITIAL LUNG DISEASE [None]
